FAERS Safety Report 14343368 (Version 1)
Quarter: 2018Q1

REPORT INFORMATION
  Report Type: Spontaneous
  Country: US (occurrence: US)
  Receive Date: 20180101
  Receipt Date: 20180101
  Transmission Date: 20180509
  Serious: Yes (Other)
  Sender: FDA-Public Use
  Company Number: None

PATIENT
  Age: 4 Year
  Sex: Male
  Weight: 18 kg

DRUGS (3)
  1. CHILDREN^S GUMMY DAILY VIITAMINS [Concomitant]
  2. CHILDREN^S CULTURELLE DAILY [Concomitant]
  3. OSELTAMIVIR PHOSOPHATE FOR ORAL SOLUTION [Suspect]
     Active Substance: OSELTAMIVIR PHOSPHATE
     Indication: INFLUENZA
     Dosage: ?          QUANTITY:6 ML;?
     Route: 048
     Dates: start: 20171227, end: 20171231

REACTIONS (2)
  - Sleep terror [None]
  - Intentional self-injury [None]

NARRATIVE: CASE EVENT DATE: 20171230
